FAERS Safety Report 8967657 (Version 1)
Quarter: 2012Q4

REPORT INFORMATION
  Report Type: Spontaneous
  Country: US (occurrence: None)
  Receive Date: 20121206
  Receipt Date: 20121206
  Transmission Date: 20130627
  Serious: Yes (Other)
  Sender: FDA-Public Use
  Company Number: KAD201211-000501

PATIENT
  Age: 53 Year
  Sex: Male
  Weight: 75.3 kg

DRUGS (9)
  1. RIBASPHERE RIBAPAK [Suspect]
     Indication: HEPATITIS C
     Dosage: 800 mg daily: 400 mg AM, 400 mg PM, Oral
     Route: 048
     Dates: start: 20111111, end: 20120527
  2. PEGASYS [Suspect]
     Indication: HEPATITIS C
     Route: 058
     Dates: start: 20111111, end: 201205
  3. LISINOPRIL [Concomitant]
  4. LANTUS [Concomitant]
  5. CYMBALTA [Concomitant]
  6. KLONOPIN [Concomitant]
  7. DOXEPIN [Concomitant]
  8. PROMETHAZINE [Concomitant]
  9. OPANA ER [Concomitant]

REACTIONS (7)
  - White blood cell count increased [None]
  - Haemoglobin decreased [None]
  - Platelet count decreased [None]
  - Osteonecrosis of jaw [None]
  - Aspartate aminotransferase increased [None]
  - Alanine aminotransferase increased [None]
  - Blood alkaline phosphatase increased [None]
